FAERS Safety Report 19443897 (Version 6)
Quarter: 2021Q3

REPORT INFORMATION
  Report Type: Report from Study
  Country: RU (occurrence: RU)
  Receive Date: 20210621
  Receipt Date: 20210909
  Transmission Date: 20211014
  Serious: Yes (Death, Hospitalization)
  Sender: FDA-Public Use
  Company Number: NVSC2021RU065661

PATIENT
  Age: 32 Year
  Sex: Female
  Weight: 66 kg

DRUGS (8)
  1. MEXIDOL [Concomitant]
     Active Substance: EMOXYPINE SUCCINATE
     Indication: NEUROPATHY PERIPHERAL
     Dosage: 2 MG
     Route: 065
     Dates: start: 20210116
  2. DIBAZOL [Concomitant]
     Indication: HEADACHE
     Dosage: 2.5 MG, BID
     Route: 048
     Dates: start: 20210116
  3. LEE011 [Suspect]
     Active Substance: RIBOCICLIB
     Indication: HER2 NEGATIVE BREAST CANCER
     Dosage: 200 MG, QD
     Route: 048
     Dates: start: 20201225, end: 20210525
  4. CALCIUM D3 [Concomitant]
     Active Substance: CALCIUM\CHOLECALCIFEROL
     Indication: HYPOCALCAEMIA
     Dosage: 500 MG + 200 MG, BID
     Route: 048
     Dates: start: 20201215
  5. CITICOLINE [Concomitant]
     Active Substance: CITICOLINE
     Indication: NEUROPATHY PERIPHERAL
     Dosage: 10 ML
     Route: 048
     Dates: start: 20210116
  6. GOSERELIN [Suspect]
     Active Substance: GOSERELIN
     Indication: HER2 NEGATIVE BREAST CANCER
     Dosage: 3.6 MG, Q4W
     Route: 058
     Dates: start: 20201225, end: 20210525
  7. ANASTROZOLE. [Suspect]
     Active Substance: ANASTROZOLE
     Indication: HER2 NEGATIVE BREAST CANCER
     Dosage: 1 MG, QD
     Route: 048
     Dates: start: 20201225, end: 20210525
  8. GLYCINE. [Concomitant]
     Active Substance: GLYCINE
     Indication: NEUROPATHY PERIPHERAL
     Dosage: 200 MG, BID
     Route: 048
     Dates: start: 20210116

REACTIONS (1)
  - Depressed mood [Fatal]

NARRATIVE: CASE EVENT DATE: 20210314
